FAERS Safety Report 4851796-6 (Version None)
Quarter: 2005Q4

REPORT INFORMATION
  Report Type: 
  Country: None (occurrence: None)
  Receive Date: 20051209
  Receipt Date: 20051128
  Transmission Date: 20060501
  Serious: Yes (Death, Other)
  Sender: FDA-Public Use
  Company Number: 200023

PATIENT
  Age: 51 Year
  Sex: Male

DRUGS (6)
  1. RITUXAN                   (RITUXIMAB) [Suspect]
     Indication: NON-HODGKIN'S LYMPHOMA
     Dosage: 679 MG, 1/WEEK, INTRAVENOUS
     Route: 042
     Dates: start: 20020125, end: 20020201
  2. LOXOPROFEN SODIUM [Concomitant]
  3. HYDREX                  (FUROSEMIDE) [Concomitant]
  4. MITOXANTRONE [Concomitant]
  5. ETOPOSIDE [Concomitant]
  6. ANTIBIOTIC (UNKNOWN TYPE) [Concomitant]

REACTIONS (3)
  - CYTOMEGALOVIRUS INFECTION [None]
  - DRUG INEFFECTIVE [None]
  - STAPHYLOCOCCAL SEPSIS [None]
